APPROVED DRUG PRODUCT: BIOSCRUB
Active Ingredient: CHLORHEXIDINE GLUCONATE
Strength: 4%
Dosage Form/Route: SPONGE;TOPICAL
Application: N019822 | Product #001
Applicant: KW GRIFFEN CO
Approved: Mar 31, 1989 | RLD: No | RS: No | Type: OTC